FAERS Safety Report 7652356-4 (Version None)
Quarter: 2011Q3

REPORT INFORMATION
  Report Type: 
  Country: None (occurrence: None)
  Receive Date: 20110803
  Receipt Date: 20110720
  Transmission Date: 20111222
  Serious: Yes (Death)
  Sender: FDA-Public Use
  Company Number: US-MYLANLABS-2011S1015947

PATIENT

DRUGS (3)
  1. DACTINOMYCIN [Suspect]
     Indication: SKIN CANCER
     Route: 042
  2. HEPARIN [Concomitant]
  3. MELPHALAN HYDROCHLORIDE [Suspect]
     Indication: SKIN CANCER
     Route: 042

REACTIONS (1)
  - DEATH [None]
